FAERS Safety Report 13016589 (Version 1)
Quarter: 2016Q4

REPORT INFORMATION
  Report Type: Spontaneous
  Country: DE (occurrence: DE)
  Receive Date: 20161212
  Receipt Date: 20161212
  Transmission Date: 20170207
  Serious: Yes (Congenital Anomaly, Other)
  Sender: FDA-Public Use
  Company Number: DE-AUROBINDO-AUR-APL-2016-15179

PATIENT
  Age: 1 Day
  Sex: Male
  Weight: 2.6 kg

DRUGS (2)
  1. FOLSAEURE [Concomitant]
     Active Substance: FOLIC ACID
     Indication: PROPHYLAXIS OF NEURAL TUBE DEFECT
     Route: 064
  2. ARIPIPRAZOLE 15 MG [Suspect]
     Active Substance: ARIPIPRAZOLE
     Indication: SCHIZOPHRENIA
     Dosage: 15 MG, ONCE A DAY
     Route: 064
     Dates: start: 20150716, end: 20160401

REACTIONS (5)
  - Naevus flammeus [Not Recovered/Not Resolved]
  - Foetal exposure during pregnancy [Not Recovered/Not Resolved]
  - Hypoglycaemia neonatal [Recovered/Resolved]
  - Haemangioma congenital [Not Recovered/Not Resolved]
  - Hypospadias [Not Recovered/Not Resolved]

NARRATIVE: CASE EVENT DATE: 20160401
